FAERS Safety Report 9225514 (Version 1)
Quarter: 2013Q2

REPORT INFORMATION
  Report Type: Spontaneous
  Country: US (occurrence: None)
  Receive Date: 20130410
  Receipt Date: 20130410
  Transmission Date: 20140414
  Serious: No
  Sender: FDA-Public Use
  Company Number: None

PATIENT
  Sex: Male
  Weight: 88 kg

DRUGS (3)
  1. ENBREL [Suspect]
     Indication: ARTHRITIS
     Dosage: 50 MG SUB Q ONCE WEEKLY SQ
     Route: 058
  2. ENBREL [Suspect]
     Indication: INFLAMMATION
     Dosage: 50 MG SUB Q ONCE WEEKLY SQ
     Route: 058
  3. REMICADE [Suspect]
     Indication: UVEITIS
     Dosage: 400 MG EVERY 8 WEEKS IV
     Route: 042

REACTIONS (1)
  - Prostate cancer [None]
